FAERS Safety Report 16971054 (Version 2)
Quarter: 2019Q4

REPORT INFORMATION
  Report Type: Spontaneous
  Country: US (occurrence: US)
  Receive Date: 20191029
  Receipt Date: 20191108
  Transmission Date: 20200122
  Serious: Yes (Other)
  Sender: FDA-Public Use
  Company Number: US-TEVA-2019-US-1128856

PATIENT
  Age: 80 Year
  Sex: Male

DRUGS (2)
  1. GEMCITABINE. [Suspect]
     Active Substance: GEMCITABINE
     Indication: LUNG SQUAMOUS CELL CARCINOMA METASTATIC
     Dosage: RECEIVED ONLY TWO CYCLES OF CHEMOTHERAPY
     Route: 065
  2. CARBOPLATIN. [Suspect]
     Active Substance: CARBOPLATIN
     Indication: LUNG SQUAMOUS CELL CARCINOMA METASTATIC
     Dosage: RECEIVED ONLY TWO CYCLES OF CHEMOTHERAPY
     Route: 065

REACTIONS (5)
  - Drug intolerance [Unknown]
  - Renal failure [Unknown]
  - Bone marrow failure [Unknown]
  - Pancytopenia [Unknown]
  - Respiratory failure [Unknown]
